FAERS Safety Report 7601977-3 (Version None)
Quarter: 2011Q2

REPORT INFORMATION
  Report Type: 
  Country: None (occurrence: None)
  Receive Date: 20110630
  Receipt Date: 20110418
  Transmission Date: 20111010
  Serious: Yes (Other)
  Sender: FDA-Public Use
  Company Number: 2011028247

PATIENT
  Age: 59 Year
  Sex: Male

DRUGS (13)
  1. COUMADIN [Concomitant]
  2. HYDRALAZINE HCL [Concomitant]
  3. ARGATROBAN DRIP (ARGATROPBAN) [Concomitant]
  4. CARIMUNE NF [Suspect]
     Indication: PURPURA
     Dosage: (INTRAVENOUS (NOT OTHERWISE SPECIFIED))
     Route: 042
  5. ALBUTEROL [Concomitant]
  6. AMLODIPINE [Concomitant]
  7. CYCLOBENZAPRINE [Concomitant]
  8. GABAPENTIN [Concomitant]
  9. LANTUS [Concomitant]
  10. REGULAR INSULIN SLIDING SCALE (INSULIN) [Concomitant]
  11. METOPROLOL TARTRATE [Concomitant]
  12. TAMSULOSIN HCL [Concomitant]
  13. VANCOMYCIN IV DRIP (VANCOMYCIN) [Concomitant]

REACTIONS (4)
  - NEPHROTIC SYNDROME [None]
  - BLOOD CREATININE INCREASED [None]
  - RENAL FAILURE [None]
  - OLIGURIA [None]
